FAERS Safety Report 4765394-6 (Version None)
Quarter: 2005Q3

REPORT INFORMATION
  Report Type: 
  Country: None (occurrence: None)
  Receive Date: 20050908
  Receipt Date: 20050908
  Transmission Date: 20060218
  Serious: Yes (Other)
  Sender: FDA-Public Use
  Company Number: None

PATIENT
  Age: 37 Year
  Sex: Male
  Weight: 90.7194 kg

DRUGS (2)
  1. ZOLOFT [Suspect]
     Indication: GENERALISED ANXIETY DISORDER
     Dosage: 100 MG   ONCE IN MORNING.  PO
     Route: 048
     Dates: start: 20050401, end: 20050907
  2. CLONAZEPAM [Suspect]
     Indication: GENERALISED ANXIETY DISORDER
     Dosage: .25 MG   ONCE AT BEDTIME.   PO
     Route: 048
     Dates: start: 20041001, end: 20050907

REACTIONS (2)
  - INSOMNIA [None]
  - MUSCLE TWITCHING [None]
